FAERS Safety Report 16988194 (Version 1)
Quarter: 2019Q4

REPORT INFORMATION
  Report Type: Spontaneous
  Country: US (occurrence: US)
  Receive Date: 20191104
  Receipt Date: 20191104
  Transmission Date: 20200122
  Serious: No
  Sender: FDA-Public Use
  Company Number: US-AUROBINDO-AUR-APL-2019-053618

PATIENT
  Sex: Female

DRUGS (2)
  1. SUMATRIPTAN TABLET [Suspect]
     Active Substance: SUMATRIPTAN
     Indication: HEADACHE
     Dosage: UNK
     Route: 065
  2. ESCITALOPRAM [Suspect]
     Active Substance: ESCITALOPRAM OXALATE
     Indication: HEADACHE
     Dosage: UNK
     Route: 065

REACTIONS (24)
  - Anxiety [Unknown]
  - Back pain [Unknown]
  - Restlessness [Unknown]
  - Dry mouth [Unknown]
  - Somnolence [Unknown]
  - Dizziness [Unknown]
  - Nausea [Unknown]
  - Vomiting [Unknown]
  - Diarrhoea [Unknown]
  - Insomnia [Unknown]
  - Epistaxis [Unknown]
  - Headache [Unknown]
  - Eye swelling [Unknown]
  - Arthralgia [Unknown]
  - Eye pain [Unknown]
  - Eye pruritus [Unknown]
  - Blister [Unknown]
  - Hyperhidrosis [Unknown]
  - Irritability [Unknown]
  - Urticaria [Unknown]
  - Mood altered [Unknown]
  - Musculoskeletal stiffness [Unknown]
  - Dyspnoea [Unknown]
  - Mouth swelling [Unknown]
